FAERS Safety Report 21600514 (Version 4)
Quarter: 2024Q4

REPORT INFORMATION
  Report Type: Report from Study
  Country: US (occurrence: US)
  Receive Date: 20221116
  Receipt Date: 20241016
  Transmission Date: 20250114
  Serious: No
  Sender: NOVARTIS
  Company Number: US-002147023-NVSC2022US254952

PATIENT
  Sex: Female

DRUGS (1)
  1. ENTRESTO [Suspect]
     Active Substance: SACUBITRIL\VALSARTAN
     Indication: Cardiac failure
     Dosage: UNK (49/51 MG), BID
     Route: 048
     Dates: start: 20220915

REACTIONS (4)
  - Weight increased [Unknown]
  - Aphonia [Not Recovered/Not Resolved]
  - Blood pressure decreased [Unknown]
  - Cough [Unknown]
